FAERS Safety Report 14339345 (Version 11)
Quarter: 2022Q2

REPORT INFORMATION
  Report Type: Spontaneous
  Country: GB (occurrence: GB)
  Receive Date: 20171230
  Receipt Date: 20220607
  Transmission Date: 20220720
  Serious: Yes (Death, Life-Threatening, Hospitalization, Disabling, Other)
  Sender: FDA-Public Use
  Company Number: GB-MHRA-EYC 00170316

PATIENT
  Age: 76 Year
  Sex: Male
  Weight: 69 kg

DRUGS (69)
  1. BISOPROLOL [Interacting]
     Active Substance: BISOPROLOL
     Indication: Product used for unknown indication
     Dosage: UNK
     Route: 065
  2. CLARITHROMYCIN [Suspect]
     Active Substance: CLARITHROMYCIN
     Indication: Lower respiratory tract infection
     Dosage: 500 MILLIGRAM, TWO TIMES A DAY
     Route: 048
     Dates: start: 20170717, end: 20170724
  3. CLARITHROMYCIN [Suspect]
     Active Substance: CLARITHROMYCIN
     Indication: Pneumonia
  4. CLARITHROMYCIN [Suspect]
     Active Substance: CLARITHROMYCIN
     Indication: Mediastinitis
  5. TACROLIMUS [Interacting]
     Active Substance: TACROLIMUS
     Indication: Prophylaxis against transplant rejection
     Dosage: 3 MILLIGRAM, ONCE A DAY(1.5 MG, BID )
     Route: 048
     Dates: start: 20180127, end: 20180130
  6. TACROLIMUS [Interacting]
     Active Substance: TACROLIMUS
     Indication: Renal transplant
     Dosage: 30 MILLIGRAM, ONCE A DAY(15 MG, BID )
     Route: 048
     Dates: start: 20180127
  7. TACROLIMUS [Interacting]
     Active Substance: TACROLIMUS
     Dosage: 1.5 MILLIGRAM, ONCE A DAY
     Route: 048
     Dates: start: 20180127
  8. TACROLIMUS [Interacting]
     Active Substance: TACROLIMUS
     Dosage: 4 MILLIGRAM, ONCE A DAY (4 MG, QD)
     Route: 048
     Dates: start: 20180128
  9. TACROLIMUS [Interacting]
     Active Substance: TACROLIMUS
     Dosage: 4 MILLIGRAM, ONCE A DAY(2 MG, BID )
     Route: 048
     Dates: start: 20180130
  10. TACROLIMUS [Interacting]
     Active Substance: TACROLIMUS
     Dosage: 30 MILLIGRAM, ONCE A DAY
     Route: 065
  11. TACROLIMUS [Interacting]
     Active Substance: TACROLIMUS
     Dosage: 3 MILLIGRAM, ONCE A DAY (1.5 MG, BID)
     Route: 048
     Dates: start: 20100127, end: 20180130
  12. ALFACALCIDOL [Suspect]
     Active Substance: ALFACALCIDOL
     Indication: Product used for unknown indication
     Dosage: 500 MILLIGRAM, ONCE A DAY(ALFACALCIDOL 500NG OD PO O/A )
     Route: 048
  13. ALFACALCIDOL [Suspect]
     Active Substance: ALFACALCIDOL
     Dosage: 500 NANOGRAM, ONCE A DAY
     Route: 065
  14. CEFUROXIME [Suspect]
     Active Substance: CEFUROXIME
     Indication: Product used for unknown indication
     Dosage: UNK
     Route: 065
     Dates: start: 20180131
  15. CLARITHROMYCIN [Suspect]
     Active Substance: CLARITHROMYCIN
     Indication: Lower respiratory tract infection
     Dosage: 1000 MILLIGRAM, ONCE A DAY, 500 MG, BID
     Route: 042
     Dates: start: 20180127, end: 20180131
  16. CLARITHROMYCIN [Suspect]
     Active Substance: CLARITHROMYCIN
     Indication: Pneumonia
     Dosage: 500 MILLIGRAM, ONCE A DAY
     Route: 042
  17. CLARITHROMYCIN [Suspect]
     Active Substance: CLARITHROMYCIN
     Indication: Mediastinitis
     Dosage: 9000 MILLIGRAM
     Route: 065
  18. DIGOXIN [Suspect]
     Active Substance: DIGOXIN
     Indication: Product used for unknown indication
     Dosage: UNK
     Route: 065
  19. DOXYCYCLINE [Suspect]
     Active Substance: DOXYCYCLINE
     Indication: Product used for unknown indication
     Dosage: UNK
     Route: 065
  20. ENVARSUS XR [Suspect]
     Active Substance: TACROLIMUS
     Indication: Prophylaxis against transplant rejection
     Dosage: 27 MILLIGRAM 5 DAYS
     Route: 065
  21. ENVARSUS XR [Suspect]
     Active Substance: TACROLIMUS
     Indication: Renal transplant
     Dosage: 3 MILLIGRAM, ONCE A DAY
     Route: 065
     Dates: start: 20180127
  22. ENVARSUS XR [Suspect]
     Active Substance: TACROLIMUS
     Dosage: 3 MILLIGRAM, ONCE A DAY (1.5 MG, BID)
     Route: 048
     Dates: start: 20180127, end: 20180131
  23. NITROGLYCERIN [Suspect]
     Active Substance: NITROGLYCERIN
     Indication: Product used for unknown indication
     Dosage: UNK
     Route: 065
  24. DEXTROSE [Suspect]
     Active Substance: DEXTROSE
     Indication: Product used for unknown indication
     Dosage: UNK
     Route: 065
  25. DEXTROSE [Suspect]
     Active Substance: DEXTROSE
     Dosage: UNK
     Route: 065
     Dates: start: 20180130
  26. HYDROCORTISONE [Suspect]
     Active Substance: HYDROCORTISONE
     Indication: Product used for unknown indication
     Dosage: 150 MILLIGRAM, ONCE A DAY
     Route: 042
  27. HYDROCORTISONE [Suspect]
     Active Substance: HYDROCORTISONE
     Dosage: 150 MILLIGRAM, ONCE A DAY (50 MILLIGRAM TID)
     Route: 042
     Dates: start: 20180201
  28. HYDROCORTISONE [Suspect]
     Active Substance: HYDROCORTISONE
     Dosage: 450 MILLIGRAM, ONCE A DAY
     Route: 065
     Dates: start: 20180201
  29. NITROGLYCERIN [Interacting]
     Active Substance: NITROGLYCERIN
     Indication: Product used for unknown indication
     Dosage: UNK
     Route: 065
  30. SENNOSIDES A AND B [Suspect]
     Active Substance: SENNOSIDES A AND B
     Indication: Product used for unknown indication
     Dosage: UNK
     Route: 065
  31. TACROLIMUS [Interacting]
     Active Substance: TACROLIMUS
     Indication: Prophylaxis against transplant rejection
     Dosage: 27 MILLIGRAM
     Route: 065
  32. TACROLIMUS [Interacting]
     Active Substance: TACROLIMUS
     Indication: Renal transplant
     Dosage: 30 MILLIGRAM, ONCE A DAY (30 MILLIGRAM, QD (15 MG, BID)
     Route: 048
     Dates: start: 20180127
  33. TACROLIMUS [Interacting]
     Active Substance: TACROLIMUS
     Dosage: 3 MILLIGRAM, ONCE A DAY, 1.5 MG, BID
     Route: 048
     Dates: start: 20100127, end: 20180130
  34. TACROLIMUS [Interacting]
     Active Substance: TACROLIMUS
     Dosage: 4 MILLIGRAM, ONCE A DAY (2 MILLIGRAM, BID)
     Route: 065
     Dates: start: 20180128
  35. TACROLIMUS [Interacting]
     Active Substance: TACROLIMUS
     Dosage: 12 MILLIGRAM
     Route: 065
  36. TACROLIMUS [Interacting]
     Active Substance: TACROLIMUS
     Dosage: 1.5 MILLIGRAM, ONCE A DAY
     Route: 048
     Dates: start: 20180127, end: 20180131
  37. TACROLIMUS [Interacting]
     Active Substance: TACROLIMUS
     Dosage: 2 MILLIGRAM, ONCE A DAY
     Route: 048
  38. TACROLIMUS [Interacting]
     Active Substance: TACROLIMUS
     Dosage: 15 MILLIGRAM, TWO TIMES A DAY
     Route: 048
  39. OMEPRAZOLE [Suspect]
     Active Substance: OMEPRAZOLE
     Indication: Duodenal ulcer
     Dosage: 20 MILLIGRAM, ONE MONTH
     Route: 048
  40. OMEPRAZOLE [Suspect]
     Active Substance: OMEPRAZOLE
     Dosage: 20 MILLIGRAM, ONCE A DAY QD (MORNING) (OMEPRAZOLE CHEMO IBERICA 20 MG DAILY)
     Route: 048
  41. OMEPRAZOLE [Suspect]
     Active Substance: OMEPRAZOLE
     Dosage: 20 MILLIGRAM, ONCE A DAY QD (MORNING)
     Route: 065
  42. ALLOPURINOL [Concomitant]
     Active Substance: ALLOPURINOL
     Indication: Product used for unknown indication
     Dosage: 100 MILLIGRAM, ONCE A DAY(ALLOPURINOL 100MG OD PO O/A)
     Route: 048
  43. BETAHISTINE [Concomitant]
     Active Substance: BETAHISTINE
     Indication: Product used for unknown indication
     Dosage: 8 MILLIGRAM, ONE MONTH (8 MG, QMO )
     Route: 048
  44. BETAHISTINE [Concomitant]
     Active Substance: BETAHISTINE
     Dosage: 8 MILLIGRAM, ONCE A DAY(BETAHISTINE 8MG OM PO )
     Route: 048
  45. CALCIUM CARBONATE [Concomitant]
     Active Substance: CALCIUM CARBONATE
     Indication: Product used for unknown indication
     Dosage: UNK
     Route: 048
  46. CASSIA ACUTIFOLIA [Concomitant]
     Indication: Product used for unknown indication
     Dosage: 15 MILLIGRAM, ONCE A DAY(SENNA 15MG ON PO O/A ) NIGHT
     Route: 048
  47. CHOLECALCIFEROL [Concomitant]
     Active Substance: CHOLECALCIFEROL
     Indication: Product used for unknown indication
     Dosage: 20 NANOGRAM, ONCE A DAY (MORNING)
     Route: 048
  48. CHOLECALCIFEROL [Concomitant]
     Active Substance: CHOLECALCIFEROL
     Dosage: 20 NANOGRAM, ONE MONTH
     Route: 048
  49. DEXTROSE [Concomitant]
     Active Substance: DEXTROSE
     Indication: Product used for unknown indication
     Dosage: UNK
     Route: 065
     Dates: start: 20180130
  50. EPLERENONE [Concomitant]
     Active Substance: EPLERENONE
     Indication: Product used for unknown indication
     Dosage: 25 MILLIGRAM, ONCE A DAY (MORNING)
     Route: 048
     Dates: start: 20180130
  51. EPLERENONE [Concomitant]
     Active Substance: EPLERENONE
     Dosage: 25 MILLIGRAM, ONE MONTH
     Route: 048
     Dates: start: 20180130
  52. FUROSEMIDE [Concomitant]
     Active Substance: FUROSEMIDE
     Indication: Product used for unknown indication
     Dosage: 80 MILLIGRAM, ONCE A DAY, QD (MORNING)
     Route: 048
     Dates: start: 20180130
  53. FUROSEMIDE [Concomitant]
     Active Substance: FUROSEMIDE
     Dosage: 40 MILLIGRAM, 12 PM
     Route: 048
  54. FUROSEMIDE [Concomitant]
     Active Substance: FUROSEMIDE
     Dosage: 80 MILLIGRAM, ONE MONTH
     Route: 048
     Dates: start: 20180130
  55. FUROSEMIDE [Concomitant]
     Active Substance: FUROSEMIDE
     Dosage: 120 MILLIGRAM, ONCE A DAY (80MG MORNING, 40MG 12PM)
     Route: 048
  56. GLUCAGON [Concomitant]
     Active Substance: GLUCAGON
     Indication: Product used for unknown indication
     Dosage: UNK
     Route: 030
     Dates: start: 20180130
  57. GLICLAZIDE [Concomitant]
     Active Substance: GLICLAZIDE
     Indication: Product used for unknown indication
     Dosage: 40 MILLIGRAM, ONCE A DAY (MORNING)
     Route: 048
  58. GLICLAZIDE [Concomitant]
     Active Substance: GLICLAZIDE
     Dosage: 40 MILLIGRAM, 1 MONTH
     Route: 048
  59. PREDNISOLONE [Concomitant]
     Active Substance: PREDNISOLONE
     Indication: Product used for unknown indication
     Dosage: 10 MILLIGRAM (10 MG (DOSE INCREASED TO 10 MG FOR 5 DAYS))
     Route: 048
  60. PREDNISOLONE [Concomitant]
     Active Substance: PREDNISOLONE
     Dosage: 5 MILLIGRAM, ONE MONTH (5 MG, QMO (MORNING)
     Route: 048
     Dates: start: 20180127
  61. PREDNISOLONE [Concomitant]
     Active Substance: PREDNISOLONE
     Dosage: 5 MILLIGRAM, ONCE A DAY
     Route: 048
  62. PREDNISOLONE [Concomitant]
     Active Substance: PREDNISOLONE
     Dosage: 10 MILLIGRAM, (INCREASE PREDNISOLONE TO 10 MG FOR 5 DAYS)
     Route: 065
     Dates: start: 20180127
  63. NITROGLYCERIN [Concomitant]
     Active Substance: NITROGLYCERIN
     Indication: Product used for unknown indication
     Dosage: UNK
     Route: 065
  64. ALBUTEROL [Concomitant]
     Active Substance: ALBUTEROL
     Indication: Product used for unknown indication
     Dosage: UNK
     Route: 065
  65. SENNA [Concomitant]
     Active Substance: SENNA LEAF\SENNOSIDES\SENNOSIDES A AND B
     Indication: Product used for unknown indication
     Dosage: 15 MILLIGRAM, ONCE A DAY
     Route: 048
  66. DOXYCYCLINE [Concomitant]
     Active Substance: DOXYCYCLINE
     Indication: Product used for unknown indication
     Dosage: 1 DOSAGE FORM
     Route: 065
  67. HYDROCORTISONE [Concomitant]
     Active Substance: HYDROCORTISONE
     Indication: Product used for unknown indication
     Dosage: 50 MILLIGRAM, 3 TIMES A DAY  (150 MILLIGRAM DAILY)
     Route: 042
  68. ALFACALCIDOL [Concomitant]
     Active Substance: ALFACALCIDOL
     Indication: Product used for unknown indication
     Dosage: 500 NANOGRAM, ONCE A DAY
     Route: 048
  69. NITROGLYCERIN [Concomitant]
     Active Substance: NITROGLYCERIN
     Indication: Product used for unknown indication
     Dosage: GTN SPRAY
     Route: 065

REACTIONS (34)
  - Ascites [Fatal]
  - Acute kidney injury [Fatal]
  - Cardiac failure congestive [Fatal]
  - Cough [Fatal]
  - Cardiomegaly [Fatal]
  - Drug interaction [Fatal]
  - Drug level increased [Fatal]
  - Dyspnoea [Fatal]
  - Dysphagia [Fatal]
  - Haemoptysis [Unknown]
  - Hypoglycaemia [Fatal]
  - Immunosuppressant drug level increased [Fatal]
  - Inflammatory marker increased [Fatal]
  - Lung consolidation [Fatal]
  - Labelled drug-drug interaction medication error [Fatal]
  - Lower respiratory tract infection [Unknown]
  - Myocardial ischaemia [Fatal]
  - Multimorbidity [Fatal]
  - Malaise [Fatal]
  - Toxicity to various agents [Fatal]
  - Oesophageal carcinoma [Fatal]
  - Oesophageal perforation [Fatal]
  - Pleural effusion [Fatal]
  - Pyrexia [Fatal]
  - Pneumonia [Fatal]
  - Productive cough [Fatal]
  - Renal impairment [Fatal]
  - Rales [Fatal]
  - Rash [Fatal]
  - Soft tissue mass [Fatal]
  - Sepsis [Fatal]
  - Swelling [Fatal]
  - Superinfection [Fatal]
  - Transplant failure [Fatal]

NARRATIVE: CASE EVENT DATE: 20180118
